FAERS Safety Report 13075466 (Version 1)
Quarter: 2016Q4

REPORT INFORMATION
  Report Type: Spontaneous
  Country: US (occurrence: US)
  Receive Date: 20161229
  Receipt Date: 20161229
  Transmission Date: 20170207
  Serious: Yes (Hospitalization)
  Sender: FDA-Public Use
  Company Number: None

PATIENT

DRUGS (15)
  1. MELATONIN [Concomitant]
     Active Substance: MELATONIN
  2. DEPAKOTE SPRINKLES [Concomitant]
     Active Substance: DIVALPROEX SODIUM
  3. LEVOCARNITINE. [Concomitant]
     Active Substance: LEVOCARNITINE
  4. GLIPIZIDE XR [Concomitant]
     Active Substance: GLIPIZIDE
  5. CLONIDINE. [Concomitant]
     Active Substance: CLONIDINE
  6. WHITE PETROLATUM [Concomitant]
     Active Substance: PETROLATUM
  7. SIMVASTATIN. [Concomitant]
     Active Substance: SIMVASTATIN
  8. ARTIFICIAL TEARS [Concomitant]
     Active Substance: GLYCERIN\HYPROMELLOSES\POLYETHYLENE GLYCOL 400
  9. ENALAPRIL [Concomitant]
     Active Substance: ENALAPRIL
  10. ASPIRIN. [Suspect]
     Active Substance: ASPIRIN
     Indication: CORONARY ARTERY DISEASE
     Route: 048
     Dates: start: 20160812, end: 20160906
  11. AMANTADINE [Concomitant]
     Active Substance: AMANTADINE
  12. METFORMIN [Concomitant]
     Active Substance: METFORMIN HYDROCHLORIDE
  13. SYNTHROID [Concomitant]
     Active Substance: LEVOTHYROXINE SODIUM
  14. VITAMIN D3 [Concomitant]
     Active Substance: CHOLECALCIFEROL
  15. PANTOPRAZOLE [Concomitant]
     Active Substance: PANTOPRAZOLE SODIUM

REACTIONS (4)
  - Dilatation ventricular [None]
  - Dyskinesia [None]
  - Intraventricular haemorrhage [None]
  - Cerebral haemosiderin deposition [None]

NARRATIVE: CASE EVENT DATE: 20160906
